FAERS Safety Report 5104879-X (Version None)
Quarter: 2006Q3

REPORT INFORMATION
  Report Type: 
  Country: None (occurrence: None)
  Receive Date: 20060914
  Receipt Date: 20060508
  Transmission Date: 20061208
  Serious: Yes (Hospitalization)
  Sender: FDA-Public Use
  Company Number: PHBS2006FI06837

PATIENT
  Age: 79 Year
  Sex: Female

DRUGS (4)
  1. EXELON [Suspect]
     Indication: DEMENTIA ALZHEIMER'S TYPE
     Dosage: 9 MG/D
     Route: 048
     Dates: start: 20060506, end: 20060506
  2. BISOPROLOL FUMARATE [Concomitant]
  3. MULTIVITAMIN [Concomitant]
  4. FISH OIL [Concomitant]

REACTIONS (9)
  - CONVULSION [None]
  - COUGH [None]
  - DEPRESSED LEVEL OF CONSCIOUSNESS [None]
  - EPILEPSY [None]
  - FLATULENCE [None]
  - GASTRIC HYPERMOTILITY [None]
  - INJURY ASPHYXIATION [None]
  - POSTICTAL STATE [None]
  - VOMITING [None]
